FAERS Safety Report 11458442 (Version 1)
Quarter: 2015Q3

REPORT INFORMATION
  Report Type: Spontaneous
  Country: US (occurrence: US)
  Receive Date: 20150904
  Receipt Date: 20150904
  Transmission Date: 20151125
  Serious: Yes (Other)
  Sender: FDA-Public Use
  Company Number: US-PFIZER INC-2015287485

PATIENT

DRUGS (1)
  1. ADVIL [Suspect]
     Active Substance: IBUPROFEN
     Indication: HEADACHE
     Dosage: 2 DF, UNK

REACTIONS (6)
  - Impaired work ability [Unknown]
  - Dysphagia [Unknown]
  - Pain [Unknown]
  - Fluid intake reduced [Unknown]
  - Feeding disorder [Unknown]
  - Oesophageal ulcer [Unknown]
